FAERS Safety Report 8076369-6 (Version None)
Quarter: 2012Q1

REPORT INFORMATION
  Report Type: 
  Country: None (occurrence: None)
  Receive Date: 20120125
  Receipt Date: 20120125
  Transmission Date: 20120608
  Serious: Yes (Hospitalization)
  Sender: FDA-Public Use
  Company Number: None

PATIENT
  Sex: Male
  Weight: 52 kg

DRUGS (2)
  1. DAUNORUBICIN HCL [Suspect]
     Dosage: 240 MG
  2. ETOPOSIDE [Suspect]
     Dosage: 800 MG

REACTIONS (1)
  - PNEUMONIA FUNGAL [None]
